FAERS Safety Report 23366838 (Version 1)
Quarter: 2024Q1

REPORT INFORMATION
  Report Type: Spontaneous
  Country: NL (occurrence: NL)
  Receive Date: 20240104
  Receipt Date: 20240104
  Transmission Date: 20240410
  Serious: Yes (Other)
  Sender: FDA-Public Use
  Company Number: None

PATIENT
  Age: 28 Year
  Sex: Female
  Weight: 68 kg

DRUGS (3)
  1. PROVERA [Suspect]
     Active Substance: MEDROXYPROGESTERONE ACETATE
     Dosage: 1X /DAY
     Dates: start: 20230701, end: 20231120
  2. ACETAMINOPHEN\CAFFEINE [Concomitant]
     Active Substance: ACETAMINOPHEN\CAFFEINE
     Dosage: TABLET, 500/50 MG (MILLIGRAM)
  3. NAPROXEN [Concomitant]
     Active Substance: NAPROXEN
     Dosage: MAAGSAPRESISTENTE TABLET, 250 MG (MILLIGRAM)

REACTIONS (4)
  - Syncope [Recovered/Resolved]
  - Migraine [Recovered/Resolved]
  - Headache [Recovered/Resolved]
  - Depressed mood [Recovered/Resolved]
